FAERS Safety Report 5647380-7 (Version None)
Quarter: 2008Q1

REPORT INFORMATION
  Report Type: 
  Country: None (occurrence: None)
  Receive Date: 20080228
  Receipt Date: 20080215
  Transmission Date: 20080703
  Serious: Yes (Hospitalization)
  Sender: FDA-Public Use
  Company Number: 2008S1000673

PATIENT
  Age: 51 Year
  Sex: Male
  Weight: 99.7913 kg

DRUGS (17)
  1. PHENYTOIN SODIUM [Suspect]
     Dosage: 600 MG;DAILY;ORAL; 1200 MG;X1;ORAL; 700 MG;AT BEDTIME;ORAL
     Route: 048
     Dates: start: 20080113, end: 20080113
  2. PHENYTOIN SODIUM [Suspect]
     Dosage: 600 MG;DAILY;ORAL; 1200 MG;X1;ORAL; 700 MG;AT BEDTIME;ORAL
     Route: 048
     Dates: start: 20050901
  3. PHENYTOIN SODIUM [Suspect]
     Dosage: 600 MG;DAILY;ORAL; 1200 MG;X1;ORAL; 700 MG;AT BEDTIME;ORAL
     Route: 048
     Dates: start: 20080101
  4. IBUPROFEN [Suspect]
     Dosage: 400 ;DAILY;ORAL
     Route: 048
     Dates: start: 20080101, end: 20080114
  5. OXYCODONE HCL [Concomitant]
  6. FEXOFENADINE [Concomitant]
  7. CYCLOBENZAPRINE HCL [Concomitant]
  8. MUCINEX [Concomitant]
  9. TYLENOL W/ CODEINE NO. 3 [Concomitant]
  10. ATORVASTATIN CALCIUM [Concomitant]
  11. CLARINEX/01398501 [Concomitant]
  12. PANTOPRAZOLE SODIUM [Concomitant]
  13. TIZANIDINE HCL [Concomitant]
  14. MULTIVITAMIN/00831701 [Concomitant]
  15. NEURONTIN [Concomitant]
  16. CELEBREX [Concomitant]
  17. ALPRAZOLAM [Concomitant]

REACTIONS (5)
  - ANTICONVULSANT DRUG LEVEL BELOW THERAPEUTIC [None]
  - DRUG INTERACTION [None]
  - GRAND MAL CONVULSION [None]
  - INJECTION SITE IRRITATION [None]
  - POSTICTAL PARALYSIS [None]
